FAERS Safety Report 6206594-8 (Version None)
Quarter: 2009Q2

REPORT INFORMATION
  Report Type: 
  Country: None (occurrence: None)
  Receive Date: 20090528
  Receipt Date: 20090430
  Transmission Date: 20091009
  Serious: No
  Sender: FDA-Public Use
  Company Number: US-JNJFOC-20090500630

PATIENT

DRUGS (4)
  1. INVEGA [Suspect]
     Indication: DRUG USE FOR UNKNOWN INDICATION
     Route: 049
  2. ABILIFY [Concomitant]
  3. LAMICTAL [Concomitant]
  4. LEXAPRO [Concomitant]

REACTIONS (1)
  - TREATMENT FAILURE [None]
